FAERS Safety Report 17648867 (Version 2)
Quarter: 2020Q2

REPORT INFORMATION
  Report Type: Spontaneous
  Country: US (occurrence: US)
  Receive Date: 20200408
  Receipt Date: 20200423
  Transmission Date: 20200713
  Serious: No
  Sender: FDA-Public Use
  Company Number: US-009507513-2004USA001249

PATIENT
  Sex: Female

DRUGS (2)
  1. SINGULAIR [Suspect]
     Active Substance: MONTELUKAST SODIUM
     Dosage: PERIODICALLY THROUGHOUT THE YEAR, AS NEEDED
     Route: 048
  2. SINGULAIR [Suspect]
     Active Substance: MONTELUKAST SODIUM
     Dosage: PERIODICALLY THROUGHOUT THE YEAR, AS NEEDED
     Route: 048

REACTIONS (3)
  - Nasopharyngitis [Unknown]
  - Headache [Unknown]
  - Adverse event [Unknown]
